FAERS Safety Report 6335902-2 (Version None)
Quarter: 2009Q3

REPORT INFORMATION
  Report Type: 
  Country: None (occurrence: None)
  Receive Date: 20090901
  Receipt Date: 20070530
  Transmission Date: 20100115
  Serious: Yes (Hospitalization, Disabling)
  Sender: FDA-Public Use
  Company Number: US-ASTRAZENECA-2006UW23132

PATIENT
  Age: 11792 Day
  Sex: Male
  Weight: 155.6 kg

DRUGS (20)
  1. SEROQUEL [Suspect]
     Indication: BIPOLAR DISORDER
     Route: 048
     Dates: start: 20020101
  2. SEROQUEL [Suspect]
     Indication: SCHIZOPHRENIA
     Route: 048
     Dates: start: 20020101
  3. SEROQUEL [Suspect]
     Dosage: DOSE 100 MG TO 800 MG
     Route: 048
     Dates: start: 20010928
  4. SEROQUEL [Suspect]
     Dosage: DOSE 100 MG TO 800 MG
     Route: 048
     Dates: start: 20010928
  5. ABILIFY [Concomitant]
  6. RISPERDAL [Concomitant]
  7. THORAZINE [Concomitant]
  8. ZYPREXA [Concomitant]
  9. UNSPECIFIED PSYCHIATRIC MEDICATION [Concomitant]
  10. UNSPECIFIED PSYCHIATRIC MEDICATION [Concomitant]
  11. UNSPECIFIED PSYCHIATRIC MEDICATION [Concomitant]
  12. DOXEPIN HCL [Concomitant]
     Dates: start: 20010101
  13. HYDROCODONE [Concomitant]
     Indication: PAIN
     Dosage: STRENGTH 10/650, DAILY SIX HOURLY AS REQUIRED
     Dates: start: 20040101
  14. METHOCARBAMOL [Concomitant]
     Dates: start: 20040101
  15. XANAX [Concomitant]
     Dates: start: 20040101
  16. LEVAQUIN [Concomitant]
     Dosage: FOR SEVEN DAYS
     Route: 048
     Dates: start: 20040415
  17. ACCUPRIL [Concomitant]
     Route: 048
     Dates: start: 20040101
  18. SOMA [Concomitant]
     Dates: start: 20040101
  19. LISINOPRIL [Concomitant]
     Dates: start: 20050101
  20. GLUCOPHAGE [Concomitant]
     Dosage: 1000 MGS DAILY
     Dates: start: 20050101

REACTIONS (3)
  - HYPERGLYCAEMIA [None]
  - MYOCARDIAL INFARCTION [None]
  - TYPE 2 DIABETES MELLITUS [None]
